FAERS Safety Report 5140169-7 (Version None)
Quarter: 2006Q4

REPORT INFORMATION
  Report Type: 
  Country: None (occurrence: None)
  Receive Date: 20061024
  Receipt Date: 20061004
  Transmission Date: 20070319
  Serious: Yes (Hospitalization)
  Sender: FDA-Public Use
  Company Number: US200610000865

PATIENT
  Age: 72 Year
  Sex: Female

DRUGS (12)
  1. HUMALOG [Suspect]
     Indication: DIABETES MELLITUS
     Dosage: 18 U, OTHER; SEE IMAGE
     Route: 050
     Dates: start: 20050701
  2. HUMALOG [Suspect]
     Indication: DIABETES MELLITUS
     Dosage: 18 U, OTHER; SEE IMAGE
     Route: 050
     Dates: start: 20061004
  3. LANTUS [Concomitant]
  4. METFORMIN HCL [Concomitant]
  5. GLYBURIDE [Concomitant]
  6. MAG-OX (MAGNESIUM OXIDE) [Concomitant]
  7. ATENOLOL [Concomitant]
  8. ISOSORBIDE (ISOSORBIDE) [Concomitant]
  9. ALTACE [Concomitant]
  10. LUTEINE (PROGESTERONE) [Concomitant]
  11. CALCIUM (CALCIUM) [Concomitant]
  12. KLOR-CON [Concomitant]

REACTIONS (5)
  - ACCIDENTAL EXPOSURE [None]
  - BLOOD GLUCOSE DECREASED [None]
  - CORONARY ARTERY OCCLUSION [None]
  - OVERDOSE [None]
  - WRONG DRUG ADMINISTERED [None]
